FAERS Safety Report 9857568 (Version 1)
Quarter: 2014Q1

REPORT INFORMATION
  Report Type: Spontaneous
  Country: JP (occurrence: JP)
  Receive Date: 20140131
  Receipt Date: 20140131
  Transmission Date: 20141002
  Serious: Yes (Other)
  Sender: FDA-Public Use
  Company Number: PHHY2014JP009104

PATIENT
  Age: 2 Year
  Sex: Female

DRUGS (8)
  1. VALPROIC ACID [Suspect]
     Indication: EPILEPSY
     Dosage: 11 MG/KG,PER DAY
  2. VALPROIC ACID [Suspect]
     Indication: MUSCLE SPASMS
  3. PHENOBARBITAL [Suspect]
     Route: 048
  4. VITAMIN B6 [Suspect]
  5. CLONAZEPAM [Suspect]
  6. CLOBAZAM [Suspect]
  7. LAMOTRIGINE [Suspect]
  8. TOPIRAMATE [Suspect]

REACTIONS (5)
  - Status epilepticus [Unknown]
  - Stupor [Unknown]
  - Automatism [Unknown]
  - Drug level decreased [Unknown]
  - Drug ineffective [Unknown]
